FAERS Safety Report 7984448-4 (Version None)
Quarter: 2011Q4

REPORT INFORMATION
  Report Type: 
  Country: None (occurrence: None)
  Receive Date: 20111216
  Receipt Date: 20110816
  Transmission Date: 20120403
  Serious: No
  Sender: FDA-Public Use
  Company Number: US-MYLANLABS-2011S1017198

PATIENT
  Age: 60 Year
  Sex: Female

DRUGS (4)
  1. METFORMIN HCL [Suspect]
  2. VICTOZA [Suspect]
  3. GLIMEPIRIDE [Suspect]
  4. LANTUS [Suspect]

REACTIONS (3)
  - WEIGHT INCREASED [None]
  - BLOOD GLUCOSE INCREASED [None]
  - BLOOD GLUCOSE DECREASED [None]
